FAERS Safety Report 6100719-0 (Version None)
Quarter: 2009Q1

REPORT INFORMATION
  Report Type: 
  Country: None (occurrence: None)
  Receive Date: 20090303
  Receipt Date: 20090226
  Transmission Date: 20090719
  Serious: Yes (Death, Other)
  Sender: FDA-Public Use
  Company Number: CA-WYE-G03216009

PATIENT
  Age: 63 Year
  Sex: Male
  Weight: 57 kg

DRUGS (2)
  1. TEMSIROLIMUS [Suspect]
     Indication: METASTATIC RENAL CELL CARCINOMA
     Route: 042
     Dates: start: 20071129
  2. ZOMETA [Concomitant]
     Indication: BONE EROSION

REACTIONS (22)
  - ABDOMINAL DISTENSION [None]
  - APPETITE DISORDER [None]
  - ASTHENIA [None]
  - BLOOD CREATININE INCREASED [None]
  - CONFUSIONAL STATE [None]
  - CONSTIPATION [None]
  - DEATH [None]
  - DEPRESSION [None]
  - DISTURBANCE IN ATTENTION [None]
  - DIZZINESS [None]
  - DYSGEUSIA [None]
  - DYSPHAGIA [None]
  - FATIGUE [None]
  - GASTRIC DISORDER [None]
  - HERPES SIMPLEX [None]
  - HERPES ZOSTER [None]
  - HYPERHIDROSIS [None]
  - IMMUNE SYSTEM DISORDER [None]
  - OEDEMA PERIPHERAL [None]
  - RED BLOOD CELL COUNT DECREASED [None]
  - RENAL IMPAIRMENT [None]
  - SCROTAL ABSCESS [None]
